FAERS Safety Report 6165340-7 (Version None)
Quarter: 2009Q2

REPORT INFORMATION
  Report Type: 
  Country: None (occurrence: None)
  Receive Date: 20090421
  Receipt Date: 20090421
  Transmission Date: 20091009
  Serious: Yes (Other)
  Sender: FDA-Public Use
  Company Number: None

PATIENT
  Age: 27 Year
  Sex: Male
  Weight: 74.8435 kg

DRUGS (1)
  1. OFLOXACIN [Suspect]
     Indication: PROSTATITIS
     Dosage: 300 MG TWICE PER DAY PO DISCONTINUED AFTER 3 DAYS
     Route: 048
     Dates: start: 20090123, end: 20090126

REACTIONS (4)
  - GAIT DISTURBANCE [None]
  - PAIN IN EXTREMITY [None]
  - TENDONITIS [None]
  - URTICARIA [None]
